FAERS Safety Report 8302658-3 (Version None)
Quarter: 2012Q2

REPORT INFORMATION
  Report Type: 
  Country: None (occurrence: None)
  Receive Date: 20120420
  Receipt Date: 20120411
  Transmission Date: 20120825
  Serious: Yes (Other)
  Sender: FDA-Public Use
  Company Number: US-ELI_LILLY_AND_COMPANY-US201204004424

PATIENT
  Sex: Male

DRUGS (3)
  1. HUMALOG [Suspect]
     Indication: DIABETES MELLITUS
     Dosage: 16 U, EACH MORNING
  2. HUMALOG [Suspect]
     Dosage: 10 U, OTHER
  3. HUMALOG [Suspect]
     Dosage: 16 U, EACH EVENING

REACTIONS (3)
  - INTRA-OCULAR INJECTION [None]
  - UNDERDOSE [None]
  - BLINDNESS [None]
